FAERS Safety Report 6440514-6 (Version None)
Quarter: 2009Q4

REPORT INFORMATION
  Report Type: 
  Country: None (occurrence: None)
  Receive Date: 20091113
  Receipt Date: 20091105
  Transmission Date: 20100525
  Serious: Yes (Death)
  Sender: FDA-Public Use
  Company Number: JP-ABBOTT-09P-087-0608208-00

PATIENT
  Age: 46 Year
  Sex: Male

DRUGS (14)
  1. LEUPLIN SR FOR INJECTION 11.25 MG [Suspect]
     Indication: PROSTATE CANCER STAGE IV
     Route: 058
     Dates: start: 20080729, end: 20090424
  2. BICALUTAMIDE [Concomitant]
     Indication: PROSTATE CANCER STAGE IV
     Route: 048
     Dates: end: 20090531
  3. DECADRON [Concomitant]
     Indication: PROSTATE CANCER STAGE IV
     Route: 048
     Dates: start: 20081027, end: 20090531
  4. ZOMETA [Concomitant]
     Indication: PROSTATE CANCER STAGE IV
     Route: 042
     Dates: end: 20090531
  5. TAXOTERE [Concomitant]
     Indication: PROSTATE CANCER STAGE IV
     Route: 042
     Dates: start: 20081027, end: 20090403
  6. LOXONIN [Concomitant]
     Indication: PAIN
     Route: 048
     Dates: start: 20081017, end: 20090531
  7. MUCOSTA [Concomitant]
     Indication: GASTRITIS PROPHYLAXIS
     Route: 048
     Dates: start: 20081017, end: 20090531
  8. MS CONTIN [Concomitant]
     Indication: PAIN
     Route: 048
     Dates: start: 20081222, end: 20081229
  9. MS CONTIN [Concomitant]
     Route: 048
     Dates: start: 20081230, end: 20090104
  10. MS CONTIN [Concomitant]
     Route: 048
     Dates: start: 20090105, end: 20090515
  11. MS CONTIN [Concomitant]
     Route: 048
     Dates: start: 20090516, end: 20090531
  12. NOVAMIN [Concomitant]
     Indication: PROPHYLAXIS OF NAUSEA AND VOMITING
     Route: 048
     Dates: start: 20081222, end: 20090104
  13. ALOSENN [Concomitant]
     Indication: CONSTIPATION
     Route: 048
     Dates: start: 20081222, end: 20090531
  14. PRIMPERAN [Concomitant]
     Indication: VOMITING
     Route: 048
     Dates: start: 20090324, end: 20090531

REACTIONS (1)
  - PROSTATE CANCER [None]
